FAERS Safety Report 7805463-7 (Version None)
Quarter: 2011Q4

REPORT INFORMATION
  Report Type: 
  Country: None (occurrence: None)
  Receive Date: 20111010
  Receipt Date: 20110929
  Transmission Date: 20120403
  Serious: Yes (Other)
  Sender: FDA-Public Use
  Company Number: PHHY2010US05454

PATIENT
  Sex: Male
  Weight: 68 kg

DRUGS (3)
  1. ACYCLOVIR [Concomitant]
  2. GLEEVEC [Suspect]
     Indication: CHRONIC MYELOID LEUKAEMIA
     Dosage: 400 MG, DAILY
     Route: 048
     Dates: start: 20090929
  3. IBUPROFEN [Concomitant]

REACTIONS (3)
  - HAEMORRHOIDS [None]
  - HAEMATOCHEZIA [None]
  - NAUSEA [None]
